FAERS Safety Report 5917540-6 (Version None)
Quarter: 2008Q4

REPORT INFORMATION
  Report Type: 
  Country: None (occurrence: None)
  Receive Date: 20081010
  Receipt Date: 20081010
  Transmission Date: 20090506
  Serious: Yes (Life-Threatening, Other)
  Sender: FDA-Public Use
  Company Number: None

PATIENT
  Age: 54 Year
  Sex: Female
  Weight: 80.2867 kg

DRUGS (4)
  1. BACTRIM DS [Suspect]
     Indication: BURSITIS
     Dosage: 800-160 2 TIMES A DAY PO
     Route: 048
     Dates: start: 20080903, end: 20080912
  2. BACTRIM DS [Suspect]
     Indication: CELLULITIS
     Dosage: 800-160 2 TIMES A DAY PO
     Route: 048
     Dates: start: 20080903, end: 20080912
  3. BACTRIM DS [Suspect]
     Indication: BURSITIS
     Dosage: 800-160 2 TIMES A DAY PO
     Route: 048
     Dates: start: 20080912, end: 20080917
  4. BACTRIM DS [Suspect]
     Indication: CELLULITIS
     Dosage: 800-160 2 TIMES A DAY PO
     Route: 048
     Dates: start: 20080912, end: 20080917

REACTIONS (37)
  - ASTHENIA [None]
  - BACK PAIN [None]
  - BLOOD TEST ABNORMAL [None]
  - BODY TEMPERATURE FLUCTUATION [None]
  - CHROMATURIA [None]
  - CONFUSIONAL STATE [None]
  - DISTURBANCE IN ATTENTION [None]
  - DIZZINESS [None]
  - DRUG INEFFECTIVE [None]
  - DYSPNOEA [None]
  - ERYTHEMA [None]
  - FATIGUE [None]
  - FEELING ABNORMAL [None]
  - FLUID INTAKE REDUCED [None]
  - FUNGAL INFECTION [None]
  - GAIT DISTURBANCE [None]
  - HYPOPHAGIA [None]
  - JAUNDICE [None]
  - JOINT SWELLING [None]
  - LIVER FUNCTION TEST ABNORMAL [None]
  - MALAISE [None]
  - MIGRAINE [None]
  - MUSCULAR WEAKNESS [None]
  - MUSCULOSKELETAL CHEST PAIN [None]
  - MUSCULOSKELETAL STIFFNESS [None]
  - NAUSEA [None]
  - OCULAR ICTERUS [None]
  - PAIN [None]
  - PALPITATIONS [None]
  - PELVIC PAIN [None]
  - PRURITUS [None]
  - RED BLOOD CELL SEDIMENTATION RATE INCREASED [None]
  - SKIN DISCOLOURATION [None]
  - TENDERNESS [None]
  - THERAPEUTIC AGENT TOXICITY [None]
  - VISUAL IMPAIRMENT [None]
  - WHITE BLOOD CELL COUNT DECREASED [None]
